FAERS Safety Report 17920670 (Version 2)
Quarter: 2021Q2

REPORT INFORMATION
  Report Type: Spontaneous
  Country: US (occurrence: US)
  Receive Date: 20200621
  Receipt Date: 20210629
  Transmission Date: 20210717
  Serious: Yes (Other)
  Sender: FDA-Public Use
  Company Number: US-TEVA-2020-US-1788255

PATIENT
  Sex: Male

DRUGS (4)
  1. LORTAB [Suspect]
     Active Substance: ACETAMINOPHEN\HYDROCODONE BITARTRATE
     Route: 065
  2. OXYCODONE [Suspect]
     Active Substance: OXYCODONE
     Route: 065
  3. OXYCONTIN [Suspect]
     Active Substance: OXYCODONE HYDROCHLORIDE
     Route: 065
  4. DILAUDID [Suspect]
     Active Substance: HYDROMORPHONE HYDROCHLORIDE
     Route: 065

REACTIONS (12)
  - Dependence [Unknown]
  - Road traffic accident [Unknown]
  - Memory impairment [Unknown]
  - Intervertebral disc disorder [Unknown]
  - Osteonecrosis [Unknown]
  - Injury [Unknown]
  - Fall [Unknown]
  - Withdrawal syndrome [Unknown]
  - Diabetes mellitus [Unknown]
  - Disturbance in attention [Unknown]
  - Pain [Unknown]
  - Femur fracture [Unknown]
